FAERS Safety Report 18397565 (Version 1)
Quarter: 2020Q4

REPORT INFORMATION
  Report Type: Spontaneous
  Country: US (occurrence: US)
  Receive Date: 20201018
  Receipt Date: 20201018
  Transmission Date: 20210114
  Serious: Yes (Disabling)
  Sender: FDA-Public Use
  Company Number: None

PATIENT
  Age: 69 Year
  Sex: Female
  Weight: 64.8 kg

DRUGS (12)
  1. PLAQUENIL [Concomitant]
     Active Substance: HYDROXYCHLOROQUINE SULFATE
  2. CELECOXIB. [Concomitant]
     Active Substance: CELECOXIB
  3. DHEA [Concomitant]
     Active Substance: PRASTERONE
  4. MULTIVITAMIN [Concomitant]
     Active Substance: VITAMINS
  5. VITAMIN E [Concomitant]
     Active Substance: .ALPHA.-TOCOPHEROL
  6. CULTURELLE [Concomitant]
     Active Substance: LACTOBACILLUS RHAMNOSUS
  7. TOLAK [Suspect]
     Active Substance: FLUOROURACIL
     Indication: PRECANCEROUS CONDITION
     Route: 061
     Dates: start: 20201005, end: 20201011
  8. PREDNISONE. [Concomitant]
     Active Substance: PREDNISONE
  9. TESTERONE [Concomitant]
     Active Substance: TESTOSTERONE
  10. ESTRADIOL. [Concomitant]
     Active Substance: ESTRADIOL
  11. ZEGERID [Concomitant]
     Active Substance: OMEPRAZOLE\SODIUM BICARBONATE
  12. VITAMIN B12 [Concomitant]
     Active Substance: CYANOCOBALAMIN

REACTIONS (5)
  - Burning sensation [None]
  - Nausea [None]
  - Condition aggravated [None]
  - Dyspepsia [None]
  - Systemic lupus erythematosus [None]

NARRATIVE: CASE EVENT DATE: 20201010
